FAERS Safety Report 20868019 (Version 2)
Quarter: 2022Q2

REPORT INFORMATION
  Report Type: Spontaneous
  Country: US (occurrence: US)
  Receive Date: 20220524
  Receipt Date: 20220616
  Transmission Date: 20220721
  Serious: Yes (Other)
  Sender: FDA-Public Use
  Company Number: US-PFIZER INC-202200742499

PATIENT
  Age: 60 Year
  Sex: Female

DRUGS (1)
  1. VFEND [Suspect]
     Active Substance: VORICONAZOLE
     Dosage: 200 MG, 2X/DAY
     Route: 048

REACTIONS (5)
  - Diabetes mellitus [Unknown]
  - Fungal infection [Unknown]
  - Visual impairment [Unknown]
  - Disturbance in attention [Unknown]
  - Wound [Unknown]

NARRATIVE: CASE EVENT DATE: 20211101
